FAERS Safety Report 23492203 (Version 2)
Quarter: 2024Q1

REPORT INFORMATION
  Report Type: Report from Study
  Country: US (occurrence: US)
  Receive Date: 20240207
  Receipt Date: 20240215
  Transmission Date: 20240409
  Serious: Yes (Hospitalization, Other)
  Sender: FDA-Public Use
  Company Number: US-TAKEDA-2024TUS010250

PATIENT
  Sex: Male
  Weight: 57.3 kg

DRUGS (4)
  1. TEDUGLUTIDE [Suspect]
     Active Substance: TEDUGLUTIDE
     Indication: Device dependence
     Dosage: UNK UNK, QD
     Route: 058
     Dates: start: 2017, end: 202205
  2. TEDUGLUTIDE [Suspect]
     Active Substance: TEDUGLUTIDE
     Indication: Device dependence
     Dosage: UNK UNK, QD
     Route: 058
     Dates: start: 2017, end: 202205
  3. TEDUGLUTIDE [Suspect]
     Active Substance: TEDUGLUTIDE
     Indication: Device dependence
     Dosage: UNK UNK, QD
     Route: 058
     Dates: start: 2017, end: 202205
  4. TEDUGLUTIDE [Suspect]
     Active Substance: TEDUGLUTIDE
     Indication: Device dependence
     Dosage: UNK UNK, QD
     Route: 058
     Dates: start: 2017, end: 202205

REACTIONS (1)
  - Pneumatosis intestinalis [Recovered/Resolved]
